FAERS Safety Report 9001807 (Version 1)
Quarter: 2013Q1

REPORT INFORMATION
  Report Type: Spontaneous
  Country: US (occurrence: US)
  Receive Date: 20130107
  Receipt Date: 20130107
  Transmission Date: 20140127
  Serious: Yes (Other)
  Sender: FDA-Public Use
  Company Number: US-ABBOTT-13P-163-1030010-00

PATIENT
  Sex: Female

DRUGS (2)
  1. ANDROGEL [Suspect]
     Indication: FOETAL EXPOSURE DURING PREGNANCY
     Route: 050
  2. ANDROGEL [Suspect]
     Indication: EXPOSURE VIA BODY FLUID

REACTIONS (4)
  - Abortion spontaneous [Unknown]
  - Pain [Unknown]
  - Emotional distress [Unknown]
  - Infertility female [Unknown]
